APPROVED DRUG PRODUCT: FEMSTAT
Active Ingredient: BUTOCONAZOLE NITRATE
Strength: 100MG
Dosage Form/Route: SUPPOSITORY;VAGINAL
Application: N019359 | Product #001
Applicant: ROCHE PALO ALTO LLC
Approved: Nov 25, 1985 | RLD: No | RS: No | Type: DISCN